FAERS Safety Report 4759900-5 (Version None)
Quarter: 2005Q3

REPORT INFORMATION
  Report Type: 
  Country: None (occurrence: None)
  Receive Date: 20050831
  Receipt Date: 20050816
  Transmission Date: 20060218
  Serious: Yes (Other)
  Sender: FDA-Public Use
  Company Number: USA0507103016

PATIENT
  Age: 36 Year
  Sex: Male

DRUGS (2)
  1. CYMBALTA [Suspect]
     Indication: DEPRESSION
     Dosage: 30 MG
     Dates: start: 20050601, end: 20050701
  2. NEURONTIN [Concomitant]

REACTIONS (2)
  - CONVULSION [None]
  - HALLUCINATION, VISUAL [None]
